FAERS Safety Report 7203392-3 (Version None)
Quarter: 2010Q4

REPORT INFORMATION
  Report Type: 
  Country: None (occurrence: None)
  Receive Date: 20101220
  Receipt Date: 20101202
  Transmission Date: 20110411
  Serious: Yes (Other)
  Sender: FDA-Public Use
  Company Number: CRC-10-220

PATIENT
  Age: 8 Year
  Sex: Female
  Weight: 22.8 kg

DRUGS (2)
  1. LEVETIRACETAM [Suspect]
     Indication: CONVULSION
     Dosage: 20 MG/KG (460MG) IV ONCE
     Route: 042
     Dates: start: 20101117
  2. LEVETIRACETAM SUSPENSION [Concomitant]

REACTIONS (1)
  - WRONG TECHNIQUE IN DRUG USAGE PROCESS [None]
